FAERS Safety Report 21220640 (Version 1)
Quarter: 2022Q3

REPORT INFORMATION
  Report Type: Spontaneous
  Country: CA (occurrence: CA)
  Receive Date: 20220817
  Receipt Date: 20220817
  Transmission Date: 20221027
  Serious: Yes (Hospitalization)
  Sender: FDA-Public Use
  Company Number: None

PATIENT
  Age: 54 Year
  Sex: Female
  Weight: 67 kg

DRUGS (2)
  1. CISPLATIN [Suspect]
     Active Substance: CISPLATIN
     Indication: Osteosarcoma
     Dosage: INJECTION, BP SINGLE DOSE VIAL 10MG/10ML, 50MG/50ML AND 100MG/100ML PRESERVATIVE FREE
     Route: 042
  2. DOXORUBICIN [Suspect]
     Active Substance: DOXORUBICIN
     Indication: Osteosarcoma
     Dosage: 1 EVERY 1 DAYS, INJECTION, 10 MG/5ML, 50MG/25ML, 200MG/100ML VIAL
     Route: 042

REACTIONS (7)
  - Clostridium test positive [Recovering/Resolving]
  - Diarrhoea [Recovering/Resolving]
  - Fatigue [Recovering/Resolving]
  - Febrile neutropenia [Recovering/Resolving]
  - General physical health deterioration [Recovering/Resolving]
  - Pyrexia [Recovering/Resolving]
  - Tinnitus [Recovering/Resolving]
